FAERS Safety Report 15428903 (Version 1)
Quarter: 2018Q3

REPORT INFORMATION
  Report Type: Spontaneous
  Country: GB (occurrence: GB)
  Receive Date: 20180926
  Receipt Date: 20180926
  Transmission Date: 20181010
  Serious: Yes (Other)
  Sender: FDA-Public Use
  Company Number: GB-TEVA-2018-GB-958580

PATIENT
  Age: 74 Year
  Sex: Male
  Weight: 72 kg

DRUGS (8)
  1. ATORVASTATIN [Concomitant]
     Active Substance: ATORVASTATIN
     Dosage: 1 DOSAGE FORMS DAILY; EVERY NIGHT
     Dates: start: 20140519
  2. LISINOPRIL. [Suspect]
     Active Substance: LISINOPRIL
     Dates: start: 20180308
  3. BISOPROLOL [Concomitant]
     Active Substance: BISOPROLOL
     Dosage: 1 DOSAGE FORMS DAILY; EVERY MORNING
     Dates: start: 20140519
  4. ACETYLSALICYLIC ACID [Concomitant]
     Active Substance: ASPIRIN
     Dosage: 1 DOSAGE FORMS DAILY; MORNING
     Dates: start: 20180308, end: 20180815
  5. GLYCERYL TRINITRATE [Concomitant]
     Active Substance: NITROGLYCERIN
     Dosage: ONE OR TWO DOSES
     Route: 060
     Dates: start: 20140605
  6. LANSOPRAZOLE. [Concomitant]
     Active Substance: LANSOPRAZOLE
     Dosage: 1 DOSAGE FORMS DAILY; EVERY MORNING
     Dates: start: 20140519
  7. DALTEPARIN [Concomitant]
     Active Substance: DALTEPARIN
     Dosage: 1 DOSAGE FORMS DAILY;
     Dates: start: 20171005
  8. BRALTUS [Concomitant]
     Dosage: 1 DOSAGE FORMS DAILY; ONE CAPSULE
     Route: 055
     Dates: start: 20170516

REACTIONS (1)
  - Hypokalaemia [Recovered/Resolved]

NARRATIVE: CASE EVENT DATE: 20180308
